FAERS Safety Report 9539532 (Version 1)
Quarter: 2013Q3

REPORT INFORMATION
  Report Type: Spontaneous
  Country: DK (occurrence: None)
  Receive Date: 20130917
  Receipt Date: 20130917
  Transmission Date: 20140515
  Serious: Yes (Disabling, Other)
  Sender: FDA-Public Use
  Company Number: 2013P1019140

PATIENT
  Age: 52 Year
  Sex: Female

DRUGS (1)
  1. METHYLPREDNISOLONE [Suspect]
     Indication: BRONCHOSPASM
     Route: 042

REACTIONS (2)
  - Quadriplegia [None]
  - Myopathy [None]
